FAERS Safety Report 7514311-4 (Version None)
Quarter: 2011Q2

REPORT INFORMATION
  Report Type: 
  Country: None (occurrence: None)
  Receive Date: 20110601
  Receipt Date: 20091021
  Transmission Date: 20111010
  Serious: No
  Sender: FDA-Public Use
  Company Number: US-BIOGENIDEC-2009BI034043

PATIENT
  Sex: Female

DRUGS (2)
  1. TYSABRI [Suspect]
     Indication: MULTIPLE SCLEROSIS
     Route: 042
     Dates: start: 20060101, end: 20060201
  2. TYSABRI [Suspect]
     Route: 042
     Dates: start: 20090610

REACTIONS (7)
  - GAIT DISTURBANCE [None]
  - NASOPHARYNGITIS [None]
  - HEMIPARESIS [None]
  - FATIGUE [None]
  - BALANCE DISORDER [None]
  - MOBILITY DECREASED [None]
  - DRUG INEFFECTIVE [None]
